FAERS Safety Report 10363859 (Version 2)
Quarter: 2014Q3

REPORT INFORMATION
  Report Type: Spontaneous
  Country: BR (occurrence: BR)
  Receive Date: 20140805
  Receipt Date: 20140813
  Transmission Date: 20150326
  Serious: Yes (Death, Life-Threatening, Hospitalization)
  Sender: FDA-Public Use
  Company Number: BR-BRACCO-000245

PATIENT
  Sex: Female

DRUGS (1)
  1. PROHANCE [Suspect]
     Active Substance: GADOTERIDOL
     Indication: SPINAL MYELOGRAM
     Dosage: PROHANCE WAS ERRONEOUSLY ADMINISTERED VIA INTRATHECAL INSTEAD OF IOPAMIRON
     Route: 037
     Dates: start: 20140730, end: 20140730

REACTIONS (4)
  - Wrong drug administered [Unknown]
  - Pain in extremity [Unknown]
  - Cardiac arrest [Fatal]
  - Burning sensation [Unknown]

NARRATIVE: CASE EVENT DATE: 20140730
